FAERS Safety Report 22026774 (Version 1)
Quarter: 2023Q1

REPORT INFORMATION
  Report Type: Spontaneous
  Country: SE (occurrence: SE)
  Receive Date: 20230223
  Receipt Date: 20230223
  Transmission Date: 20230417
  Serious: Yes (Life-Threatening)
  Sender: FDA-Public Use
  Company Number: None

PATIENT
  Age: 35 Year
  Sex: Male

DRUGS (7)
  1. LOSARTAN POTASSIUM [Suspect]
     Active Substance: LOSARTAN POTASSIUM
     Indication: Hypertension
     Dosage: UNK
     Dates: start: 2021
  2. CYPROTERONE ACETATE [Suspect]
     Active Substance: CYPROTERONE ACETATE
     Indication: Libido increased
     Dosage: UNK, QD
     Dates: start: 20221206
  3. DIVIFARM [Concomitant]
     Dosage: UNK
  4. AMITRIPTYLINE [Concomitant]
     Active Substance: AMITRIPTYLINE
     Dosage: UNK
     Dates: start: 2021
  5. SUMATRIPTAN [Concomitant]
     Active Substance: SUMATRIPTAN
     Dosage: UNK
     Dates: start: 2022
  6. QUETIAPINE [Concomitant]
     Active Substance: QUETIAPINE
     Dosage: UNK
     Dates: start: 2021
  7. PROPIOMAZINE [Concomitant]
     Active Substance: PROPIOMAZINE
     Dosage: UNK
     Dates: start: 2021

REACTIONS (7)
  - Mood swings [Recovering/Resolving]
  - Palpitations [Recovering/Resolving]
  - Gastrointestinal haemorrhage [Unknown]
  - Emotional disorder [Recovering/Resolving]
  - Muscle disorder [Recovering/Resolving]
  - Dizziness [Unknown]
  - Suicide attempt [Unknown]

NARRATIVE: CASE EVENT DATE: 20221209
